FAERS Safety Report 8496736-6 (Version None)
Quarter: 2012Q3

REPORT INFORMATION
  Report Type: 
  Country: None (occurrence: None)
  Receive Date: 20120709
  Receipt Date: 20120702
  Transmission Date: 20120928
  Serious: Yes (Hospitalization, Other)
  Sender: FDA-Public Use
  Company Number: US-AMGEN-USASP2012031974

PATIENT
  Age: 63 Year
  Sex: Female
  Weight: 64.399 kg

DRUGS (1)
  1. PROLIA [Suspect]
     Indication: OSTEOPOROSIS POSTMENOPAUSAL
     Dosage: 1 ML, ONE TIME DOSE
     Dates: start: 20110503

REACTIONS (3)
  - LOW DENSITY LIPOPROTEIN INCREASED [None]
  - FOOD POISONING [None]
  - ABDOMINAL PAIN UPPER [None]
